FAERS Safety Report 12920240 (Version 1)
Quarter: 2016Q4

REPORT INFORMATION
  Report Type: Spontaneous
  Country: US (occurrence: US)
  Receive Date: 20161107
  Receipt Date: 20161107
  Transmission Date: 20170207
  Serious: No
  Sender: FDA-Public Use
  Company Number: US-GLAXOSMITHKLINE-US2016162941

PATIENT
  Sex: Female

DRUGS (7)
  1. VALSARTAN. [Concomitant]
     Active Substance: VALSARTAN
  2. VESICARE [Concomitant]
     Active Substance: SOLIFENACIN SUCCINATE
  3. DIOVAN [Concomitant]
     Active Substance: VALSARTAN
  4. VENTOLIN HFA [Suspect]
     Active Substance: ALBUTEROL SULFATE
     Dosage: 2 PUFF(S), QID
     Dates: start: 2016
  5. ATIVAN [Concomitant]
     Active Substance: LORAZEPAM
  6. PHENOBARBITAL. [Concomitant]
     Active Substance: PHENOBARBITAL
  7. TRILEPTAL [Concomitant]
     Active Substance: OXCARBAZEPINE

REACTIONS (3)
  - Underdose [Unknown]
  - Contusion [Not Recovered/Not Resolved]
  - Device use error [Unknown]
